FAERS Safety Report 25162203 (Version 1)
Quarter: 2025Q2

REPORT INFORMATION
  Report Type: Spontaneous
  Country: US (occurrence: US)
  Receive Date: 20250404
  Receipt Date: 20250404
  Transmission Date: 20250717
  Serious: No
  Sender: SANOFI AVENTIS
  Company Number: US-SA-2025SA096085

PATIENT
  Age: 34 Year
  Sex: Female
  Weight: 77.27 kg

DRUGS (11)
  1. DUPIXENT [Suspect]
     Active Substance: DUPILUMAB
     Indication: Dermatitis atopic
     Route: 058
     Dates: start: 20250330
  2. GLYCOLIC ACID [Concomitant]
     Active Substance: GLYCOLIC ACID
  3. TRIAMCINOLONE ACETONIDE [Concomitant]
     Active Substance: TRIAMCINOLONE ACETONIDE
  4. Hyaluronic acid sodium [Concomitant]
  5. PROGESTERONE [Concomitant]
     Active Substance: PROGESTERONE
  6. MAGNESIUM [Concomitant]
     Active Substance: MAGNESIUM
  7. IRON [Concomitant]
     Active Substance: IRON
  8. FISH OIL [Concomitant]
     Active Substance: FISH OIL
  9. HYDROXYZINE [Concomitant]
     Active Substance: HYDROXYZINE HYDROCHLORIDE
  10. LORAZEPAM [Concomitant]
     Active Substance: LORAZEPAM
  11. VALACYCLOVIR [Concomitant]
     Active Substance: VALACYCLOVIR HYDROCHLORIDE

REACTIONS (5)
  - Injection site pain [Recovering/Resolving]
  - Injection site vesicles [Recovering/Resolving]
  - Injection site erythema [Recovering/Resolving]
  - Pruritus [Not Recovered/Not Resolved]
  - Incorrect dose administered [Unknown]

NARRATIVE: CASE EVENT DATE: 20250330
